FAERS Safety Report 10758091 (Version 1)
Quarter: 2015Q1

REPORT INFORMATION
  Report Type: Spontaneous
  Country: US (occurrence: None)
  Receive Date: 20150202
  Receipt Date: 20150202
  Transmission Date: 20150721
  Serious: Yes (Hospitalization)
  Sender: FDA-Public Use
  Company Number: None

PATIENT
  Age: 78 Year
  Sex: Female
  Weight: 100.3 kg

DRUGS (8)
  1. PRILOSEC [Concomitant]
     Active Substance: OMEPRAZOLE MAGNESIUM
  2. PRAVACHOL [Concomitant]
     Active Substance: PRAVASTATIN SODIUM
  3. VOLTAREN [Concomitant]
     Active Substance: DICLOFENAC SODIUM
  4. AMLODIPINE [Concomitant]
     Active Substance: AMLODIPINE BESYLATE
  5. KEPPRA [Concomitant]
     Active Substance: LEVETIRACETAM
  6. ATENOLOL. [Concomitant]
     Active Substance: ATENOLOL
  7. ZYPREXA [Concomitant]
     Active Substance: OLANZAPINE
  8. DILANTIN [Suspect]
     Active Substance: PHENYTOIN
     Indication: SEIZURE
     Route: 048

REACTIONS (5)
  - Anticonvulsant drug level increased [None]
  - Fall [None]
  - Asthenia [None]
  - Urinary tract infection [None]
  - Toxicity to various agents [None]

NARRATIVE: CASE EVENT DATE: 20140923
